FAERS Safety Report 7621011-9 (Version None)
Quarter: 2011Q3

REPORT INFORMATION
  Report Type: 
  Country: None (occurrence: None)
  Receive Date: 20110719
  Receipt Date: 20101112
  Transmission Date: 20111222
  Serious: No
  Sender: FDA-Public Use
  Company Number: US-KINGPHARMUSA00001-K201001396

PATIENT
  Sex: Female

DRUGS (7)
  1. LEVOXYL [Suspect]
     Indication: HYPOTHYROIDISM
     Dosage: 100 MCG, QD
     Route: 048
     Dates: start: 20100819, end: 20101105
  2. LEVOXYL [Suspect]
     Dosage: 88 MCG, SINGLE
     Route: 048
     Dates: start: 20101106, end: 20101106
  3. LEVOXYL [Suspect]
     Dosage: 100 MCG, QD
     Route: 048
     Dates: start: 20101111
  4. HYDROCHLOROTHIAZIDE [Concomitant]
  5. CYTOMEL [Concomitant]
  6. LISINOPRIL [Concomitant]
  7. MULTI-VITAMINS [Concomitant]

REACTIONS (3)
  - PRURITUS GENERALISED [None]
  - HEPATIC ENZYME INCREASED [None]
  - DRY MOUTH [None]
